FAERS Safety Report 4934888-2 (Version None)
Quarter: 2006Q1

REPORT INFORMATION
  Report Type: 
  Country: None (occurrence: None)
  Receive Date: 20060302
  Receipt Date: 20060217
  Transmission Date: 20060701
  Serious: Yes (Hospitalization)
  Sender: FDA-Public Use
  Company Number: 163-C5013-06020408

PATIENT
  Age: 81 Year
  Sex: Male
  Weight: 87.0906 kg

DRUGS (5)
  1. CC-5013 (CAPSULES) REVLIMID [Suspect]
     Indication: PROSTATE CANCER METASTATIC
     Dosage: 5 MG, QD X14D, ORAL
     Route: 048
     Dates: start: 20060110, end: 20060123
  2. DOCETAXEL (DOCETAXEL) [Suspect]
     Indication: PROSTATE CANCER METASTATIC
     Dosage: 50 MG/M2, Q 3WKS
     Dates: start: 20060110
  3. ZOLADEX [Concomitant]
  4. ACETAMINOPHEN [Concomitant]
  5. AVALIDE (KARVEA HCT) [Concomitant]

REACTIONS (2)
  - FATIGUE [None]
  - GASTRIC ULCER PERFORATION [None]
